FAERS Safety Report 9638529 (Version 2)
Quarter: 2014Q1

REPORT INFORMATION
  Report Type: Report from Study
  Country: US (occurrence: US)
  Receive Date: 20131022
  Receipt Date: 20140212
  Transmission Date: 20141002
  Serious: Yes (Other)
  Sender: FDA-Public Use
  Company Number: US-PURDUE-USA-2013-0107726

PATIENT
  Sex: Male

DRUGS (4)
  1. OXYCONTIN (NDA 22-272) [Suspect]
     Indication: RHEUMATOID ARTHRITIS
     Dosage: 40 MG, TID
     Route: 048
     Dates: start: 2000
  2. OXYCONTIN (NDA 22-272) [Suspect]
     Indication: OSTEOARTHRITIS
  3. OXYCONTIN (NDA 22-272) [Suspect]
     Indication: BONE DISORDER
  4. OXYCODONE HCL IMMEDIATE RELEASE (91-490) [Concomitant]
     Indication: BREAKTHROUGH PAIN
     Dosage: 30 MG, UNK
     Route: 048

REACTIONS (7)
  - Staphylococcal infection [Not Recovered/Not Resolved]
  - Testicular operation [Unknown]
  - Pain [Not Recovered/Not Resolved]
  - Anaemia [Unknown]
  - Stress [Unknown]
  - Bronchitis [Not Recovered/Not Resolved]
  - General physical health deterioration [Unknown]
